FAERS Safety Report 7699898-3 (Version None)
Quarter: 2011Q3

REPORT INFORMATION
  Report Type: 
  Country: None (occurrence: None)
  Receive Date: 20110815
  Receipt Date: 20110803
  Transmission Date: 20111222
  Serious: Yes (Other)
  Sender: FDA-Public Use
  Company Number: US-GDP-11410815

PATIENT
  Sex: Female

DRUGS (5)
  1. CHOLECALCIFEROL [Concomitant]
  2. CALCIUM CARBONATE [Concomitant]
  3. CLOBEX [Suspect]
     Indication: PSORIASIS
     Dosage: 1 DF 6X/MONTH TOPICAL
     Route: 061
     Dates: start: 20101027, end: 20110520
  4. MULTI-VITAMIN [Concomitant]
  5. FOSAMAX [Concomitant]

REACTIONS (1)
  - INTRAOCULAR PRESSURE INCREASED [None]
